FAERS Safety Report 5222578-0 (Version None)
Quarter: 2007Q1

REPORT INFORMATION
  Report Type: 
  Country: None (occurrence: None)
  Receive Date: 20070129
  Receipt Date: 20070116
  Transmission Date: 20070707
  Serious: Yes (Hospitalization)
  Sender: FDA-Public Use
  Company Number: US-SHR-US-2007-001407

PATIENT
  Age: 53 Year
  Sex: Female

DRUGS (2)
  1. BETASERON [Suspect]
     Dosage: 8 MIU, EVERY 2D
     Route: 058
     Dates: start: 20060914
  2. ANALGESICS [Concomitant]

REACTIONS (4)
  - FALL [None]
  - HEAD INJURY [None]
  - INFLUENZA LIKE ILLNESS [None]
  - SKIN LACERATION [None]
